FAERS Safety Report 13004110 (Version 1)
Quarter: 2016Q4

REPORT INFORMATION
  Report Type: Spontaneous
  Country: US (occurrence: US)
  Receive Date: 20161206
  Receipt Date: 20161206
  Transmission Date: 20170207
  Serious: No
  Sender: FDA-Public Use
  Company Number: US-JAZZ-2016-US-021595

PATIENT
  Sex: Female

DRUGS (12)
  1. XYREM [Suspect]
     Active Substance: SODIUM OXYBATE
     Dosage: 3 G, BID
     Route: 048
     Dates: start: 2016, end: 2016
  2. MELATONIN [Concomitant]
     Active Substance: MELATONIN
  3. ADDERALL [Concomitant]
     Active Substance: AMPHETAMINE ASPARTATE\AMPHETAMINE SULFATE\DEXTROAMPHETAMINE SACCHARATE\DEXTROAMPHETAMINE SULFATE
  4. ALDACTONE [Concomitant]
     Active Substance: SPIRONOLACTONE
  5. ATRALIN                            /00279601/ [Concomitant]
  6. XYREM [Suspect]
     Active Substance: SODIUM OXYBATE
     Indication: NARCOLEPSY
     Dosage: 2.25 G, BID
     Route: 048
     Dates: start: 201609, end: 2016
  7. FLUARIX QUADRIVALENT [Concomitant]
  8. ZOMIG [Concomitant]
     Active Substance: ZOLMITRIPTAN
  9. EMERGEN C [Concomitant]
     Active Substance: MINERALS\VITAMINS
  10. TRIAMCINOLONE [Concomitant]
     Active Substance: TRIAMCINOLONE
  11. MAXALT [Concomitant]
     Active Substance: RIZATRIPTAN BENZOATE
  12. XYREM [Suspect]
     Active Substance: SODIUM OXYBATE
     Dosage: 3.75 G, BID
     Route: 048
     Dates: start: 201610

REACTIONS (8)
  - Gait disturbance [Unknown]
  - Somnolence [Unknown]
  - Throat irritation [Unknown]
  - Paraesthesia [Unknown]
  - Hypoaesthesia [Unknown]
  - Constipation [Unknown]
  - Sedation [Unknown]
  - Dry mouth [Unknown]
